FAERS Safety Report 5649897-8 (Version None)
Quarter: 2008Q1

REPORT INFORMATION
  Report Type: 
  Country: None (occurrence: None)
  Receive Date: 20080215
  Receipt Date: 20080204
  Transmission Date: 20080703
  Serious: Yes (Life-Threatening, Hospitalization, Other)
  Sender: FDA-Public Use
  Company Number: THYM-1000516

PATIENT
  Age: 75 Year
  Sex: Male
  Weight: 98 kg

DRUGS (1)
  1. THYMOGLOBULIN [Suspect]
     Indication: RENAL TRANSPLANT
     Dosage: 200 MG, QOD, INTRAVENOUS
     Route: 042
     Dates: start: 20070825, end: 20070827

REACTIONS (5)
  - CYTOKINE RELEASE SYNDROME [None]
  - DIALYSIS [None]
  - FLUID OVERLOAD [None]
  - HYPERCAPNIA [None]
  - RESPIRATORY FAILURE [None]
